FAERS Safety Report 11039350 (Version 1)
Quarter: 2015Q2

REPORT INFORMATION
  Report Type: Spontaneous
  Country: DE (occurrence: DE)
  Receive Date: 20150416
  Receipt Date: 20150416
  Transmission Date: 20150821
  Serious: Yes (Other)
  Sender: FDA-Public Use
  Company Number: DE-BAXTER-2015BAX017807

PATIENT
  Age: 4 Year
  Sex: Female

DRUGS (3)
  1. VINCRISTIN [Suspect]
     Active Substance: VINCRISTINE
     Indication: RHABDOMYOSARCOMA
     Route: 065
  2. HOLOXAN 3.00 G [Suspect]
     Active Substance: IFOSFAMIDE
     Indication: RHABDOMYOSARCOMA
     Route: 065
  3. UROMITEXAN TABLETTEN 600 MG [Suspect]
     Active Substance: MESNA
     Indication: RHABDOMYOSARCOMA
     Route: 065

REACTIONS (3)
  - Cystitis haemorrhagic [Recovered/Resolved]
  - Urticaria [None]
  - Scar [None]
